FAERS Safety Report 9223472 (Version 1)
Quarter: 2013Q2

REPORT INFORMATION
  Report Type: Spontaneous
  Country: SG (occurrence: SG)
  Receive Date: 20130410
  Receipt Date: 20130410
  Transmission Date: 20140414
  Serious: Yes (Other)
  Sender: FDA-Public Use
  Company Number: SG-PFIZER INC-2013108733

PATIENT
  Age: 66 Year
  Sex: Male

DRUGS (1)
  1. SULFASALAZINE [Suspect]
     Dosage: UNK

REACTIONS (2)
  - Headache [Unknown]
  - Hallucination, auditory [Unknown]
